FAERS Safety Report 7595300-0 (Version None)
Quarter: 2011Q3

REPORT INFORMATION
  Report Type: 
  Country: None (occurrence: None)
  Receive Date: 20110707
  Receipt Date: 20110627
  Transmission Date: 20111222
  Serious: Yes (Other)
  Sender: FDA-Public Use
  Company Number: US-KINGPHARMUSA00001-K201100779

PATIENT
  Age: 45 Year
  Sex: Male
  Weight: 70 kg

DRUGS (6)
  1. AVINZA [Suspect]
     Indication: BACK PAIN
     Dosage: 60 MG, TID
     Route: 048
  2. HYDROMORPHONE HCL [Suspect]
     Dosage: 8 MG, QID AS NEEDED
     Route: 048
  3. AVINZA [Suspect]
     Indication: PAIN IN EXTREMITY
  4. OXYCODONE HCL [Suspect]
  5. OXYMORPHONE [Suspect]
  6. OXYCODONE HCL [Suspect]

REACTIONS (8)
  - LIBIDO DECREASED [None]
  - HAIR GROWTH ABNORMAL [None]
  - OSTEOPOROSIS [None]
  - ERECTILE DYSFUNCTION [None]
  - DEPRESSION [None]
  - HYPOGONADISM [None]
  - FATIGUE [None]
  - HOT FLUSH [None]
